FAERS Safety Report 16697413 (Version 1)
Quarter: 2019Q3

REPORT INFORMATION
  Report Type: Spontaneous
  Country: US (occurrence: US)
  Receive Date: 20190626
  Receipt Date: 20190626
  Transmission Date: 20191004
  Serious: Yes (Hospitalization)
  Sender: FDA-Public Use
  Company Number: None

PATIENT
  Age: 72 Year
  Sex: Male
  Weight: 190 kg

DRUGS (4)
  1. 5-FLUOROURACIL (5-FU) [Suspect]
     Active Substance: FLUOROURACIL
     Dates: end: 20190603
  2. CAMPTOSAR [Suspect]
     Active Substance: IRINOTECAN HYDROCHLORIDE
     Dates: end: 20190603
  3. LEUCOVORIN CALCIUM. [Suspect]
     Active Substance: LEUCOVORIN CALCIUM
  4. ELOXATIN [Suspect]
     Active Substance: OXALIPLATIN

REACTIONS (7)
  - Decreased appetite [None]
  - Nausea [None]
  - Vomiting [None]
  - Aphasia [None]
  - Gait inability [None]
  - Haematochezia [None]
  - Diarrhoea [None]

NARRATIVE: CASE EVENT DATE: 20190617
